FAERS Safety Report 24074716 (Version 1)
Quarter: 2024Q3

REPORT INFORMATION
  Report Type: Spontaneous
  Country: CN (occurrence: CN)
  Receive Date: 20240710
  Receipt Date: 20240710
  Transmission Date: 20241016
  Serious: Yes (Other)
  Sender: PFIZER
  Company Number: CN-PFIZER INC-PV202400089435

PATIENT
  Age: 19 Month
  Sex: Male
  Weight: 11 kg

DRUGS (1)
  1. AZITHROMYCIN [Suspect]
     Active Substance: AZITHROMYCIN
     Indication: Pneumonia mycoplasmal
     Dosage: 0.1 G, 1X/DAY
     Route: 048
     Dates: start: 20240630, end: 20240702

REACTIONS (1)
  - Infantile diarrhoea [Recovering/Resolving]

NARRATIVE: CASE EVENT DATE: 20240630
